FAERS Safety Report 9162304 (Version 1)
Quarter: 2013Q1

REPORT INFORMATION
  Report Type: Spontaneous
  Country: IN (occurrence: IN)
  Receive Date: 20130314
  Receipt Date: 20130314
  Transmission Date: 20140127
  Serious: Yes (Life-Threatening)
  Sender: FDA-Public Use
  Company Number: PHHY2013IN024144

PATIENT
  Age: 90 Year
  Sex: Female

DRUGS (4)
  1. EXELON PATCH [Suspect]
     Indication: DEMENTIA ALZHEIMER^S TYPE
     Dosage: 4.6 MG, (5 CM2, DAILY)
     Route: 062
     Dates: start: 20130308
  2. REJUNEX [Suspect]
  3. SULPITAC [Suspect]
     Dosage: 0.5 DF, (DAILY)
  4. PETRIL [Suspect]
     Dosage: 0.25 MG, (DAILY)

REACTIONS (5)
  - Loss of consciousness [Not Recovered/Not Resolved]
  - Tremor [Not Recovered/Not Resolved]
  - Nausea [Not Recovered/Not Resolved]
  - Vomiting [Not Recovered/Not Resolved]
  - Diarrhoea [Not Recovered/Not Resolved]
